FAERS Safety Report 6081757-3 (Version None)
Quarter: 2009Q1

REPORT INFORMATION
  Report Type: 
  Country: None (occurrence: None)
  Receive Date: 20090218
  Receipt Date: 20090213
  Transmission Date: 20090719
  Serious: Yes (Other)
  Sender: FDA-Public Use
  Company Number: US-PFIZER INC-2009170198

PATIENT
  Sex: Male
  Weight: 74.83 kg

DRUGS (10)
  1. LIPITOR [Suspect]
     Indication: BLOOD CHOLESTEROL INCREASED
     Dosage: 20 MG, 1X/DAY
     Route: 048
     Dates: start: 20040801
  2. NIACIN [Concomitant]
     Dosage: UNK
     Route: 048
  3. ZETIA [Concomitant]
     Dosage: UNK
     Route: 048
  4. ATENOLOL [Concomitant]
     Dosage: UNK
     Route: 048
  5. PLAVIX [Concomitant]
     Dosage: UNK
     Route: 048
  6. LEVOTHYROXINE SODIUM [Concomitant]
     Dosage: UNK
     Route: 048
  7. LISINOPRIL [Concomitant]
     Dosage: UNK
     Route: 048
  8. OMEPRAZOLE [Concomitant]
     Dosage: UNK
     Route: 048
  9. TERAZOSIN HYDROCHLORIDE [Concomitant]
     Dosage: UNK
     Route: 048
  10. CORTICOSTEROIDS [Concomitant]
     Dosage: UNK
     Route: 048

REACTIONS (3)
  - HIGH DENSITY LIPOPROTEIN DECREASED [None]
  - TRANSIENT ISCHAEMIC ATTACK [None]
  - WRONG TECHNIQUE IN DRUG USAGE PROCESS [None]
